FAERS Safety Report 16238462 (Version 1)
Quarter: 2019Q2

REPORT INFORMATION
  Report Type: Spontaneous
  Country: US (occurrence: US)
  Receive Date: 20190424
  Receipt Date: 20190424
  Transmission Date: 20190711
  Serious: Yes (Other)
  Sender: FDA-Public Use
  Company Number: None

PATIENT
  Age: 74 Year
  Sex: Female
  Weight: 56.25 kg

DRUGS (13)
  1. CALCIUM [Concomitant]
     Active Substance: CALCIUM
  2. VITAMIN D3 [Concomitant]
     Active Substance: CHOLECALCIFEROL
  3. CLARITIN [Concomitant]
     Active Substance: LORATADINE
  4. OMEGA 3 FISH OIL [Concomitant]
     Active Substance: FISH OIL\OMEGA-3 FATTY ACIDS
  5. MULTI-VITAMIN [Concomitant]
     Active Substance: .ALPHA.-TOCOPHEROL ACETATE, DL-\ASCORBIC ACID\CYANOCOBALAMIN\FLUORIDE ION\FOLIC ACID\NIACIN\PYRIDOXINE\RIBOFLAVIN\THIAMINE\VITAMIN A\VITAMIN D
  6. MAGNESIUM [Concomitant]
     Active Substance: MAGNESIUM
  7. VAGIFEM [Concomitant]
     Active Substance: ESTRADIOL
  8. VALIUM [Concomitant]
     Active Substance: DIAZEPAM
  9. ASTHMA INHALER [Concomitant]
     Active Substance: UNSPECIFIED INGREDIENT
  10. QUERCETIN [Concomitant]
     Active Substance: QUERCETIN
  11. FLUOXETINE HCL 10 MG TABLET [Suspect]
     Active Substance: FLUOXETINE HYDROCHLORIDE
     Indication: ANXIETY DISORDER
     Dosage: ?          QUANTITY:180 TABLET(S);?
     Route: 048
     Dates: start: 20190402, end: 20190414
  12. BIOTIN [Concomitant]
     Active Substance: BIOTIN
  13. VITAMIN E [Concomitant]
     Active Substance: .ALPHA.-TOCOPHEROL

REACTIONS (6)
  - Urticaria [None]
  - Pruritus [None]
  - Throat tightness [None]
  - Product quality issue [None]
  - Pain [None]
  - Hypersensitivity [None]

NARRATIVE: CASE EVENT DATE: 20190410
